FAERS Safety Report 5122004-6 (Version None)
Quarter: 2006Q4

REPORT INFORMATION
  Report Type: 
  Country: None (occurrence: None)
  Receive Date: 20061003
  Receipt Date: 20060922
  Transmission Date: 20070319
  Serious: Yes (Death, Other)
  Sender: FDA-Public Use
  Company Number: 2006114150

PATIENT
  Age: 32 Year
  Sex: Male

DRUGS (6)
  1. GEODON [Suspect]
     Indication: SCHIZOPHRENIA
     Dosage: 160 MG (80 MG, 2 IN 1 D)
  2. PAXIL [Concomitant]
  3. TOPAMAX [Concomitant]
  4. CLOZARIL [Concomitant]
  5. GLIPIZIDE [Concomitant]
  6. LISINOPRIL [Concomitant]

REACTIONS (1)
  - DEATH [None]
